FAERS Safety Report 12300636 (Version 2)
Quarter: 2016Q2

REPORT INFORMATION
  Report Type: Spontaneous
  Country: CH (occurrence: CH)
  Receive Date: 20160425
  Receipt Date: 20160512
  Transmission Date: 20160815
  Serious: Yes (Hospitalization)
  Sender: FDA-Public Use
  Company Number: CH-ACTELION-A-CH2016-134804

PATIENT
  Age: 70 Year
  Sex: Female
  Weight: 63 kg

DRUGS (13)
  1. TRACLEER [Suspect]
     Active Substance: BOSENTAN
     Indication: PULMONARY ARTERIAL HYPERTENSION
     Dosage: 125 MG, BID
     Route: 048
     Dates: start: 20140419
  2. VI-DE 3 [Concomitant]
     Active Substance: CHOLECALCIFEROL
     Dosage: 20 GTT, QD
  3. TRACLEER [Suspect]
     Active Substance: BOSENTAN
     Dosage: UNK
     Route: 048
     Dates: start: 200801, end: 20140306
  4. PANTOPRAZOL [Concomitant]
     Active Substance: PANTOPRAZOLE SODIUM
     Dosage: 40 MG, BID
  5. INSULIN ASPART [Concomitant]
     Active Substance: INSULIN ASPART
     Route: 058
  6. OPSUMIT [Suspect]
     Active Substance: MACITENTAN
     Indication: PULMONARY ARTERIAL HYPERTENSION
     Dosage: UNK
     Route: 048
     Dates: start: 20140306, end: 20140419
  7. VIAGRA [Concomitant]
     Active Substance: SILDENAFIL CITRATE
     Dosage: 50 MG, TID
     Dates: start: 200904
  8. OXYGEN. [Concomitant]
     Active Substance: OXYGEN
     Dosage: 2 L, PER MIN
  9. PEMZEK PLUS [Concomitant]
     Active Substance: CANDESARTAN CILEXETIL\HYDROCHLOROTHIAZIDE
  10. INSULIN DETEMIR [Concomitant]
     Active Substance: INSULIN DETEMIR
     Dosage: 10 IU, QD
     Route: 058
  11. TOREM [Concomitant]
     Active Substance: TORSEMIDE
     Dosage: 5 MG, QD
  12. KREON [Concomitant]
     Active Substance: PANCRELIPASE
     Dosage: 25000 IU, TID
  13. MARCOUMAR [Concomitant]
     Active Substance: PHENPROCOUMON

REACTIONS (14)
  - Pancreaticoduodenectomy [Unknown]
  - Pulmonary arterial hypertension [Unknown]
  - Exercise tolerance decreased [Unknown]
  - Dyspnoea exertional [Unknown]
  - Procedural complication [Unknown]
  - Drug intolerance [Unknown]
  - Condition aggravated [Unknown]
  - Chronic kidney disease [Unknown]
  - Medical induction of coma [Unknown]
  - Ductal adenocarcinoma of pancreas [Unknown]
  - Dyspnoea [Unknown]
  - Headache [Unknown]
  - Dyspnoea at rest [Unknown]
  - Diabetes mellitus [Unknown]

NARRATIVE: CASE EVENT DATE: 201403
